FAERS Safety Report 13697102 (Version 1)
Quarter: 2017Q2

REPORT INFORMATION
  Report Type: Spontaneous
  Country: US (occurrence: US)
  Receive Date: 20170627
  Receipt Date: 20170627
  Transmission Date: 20170830
  Serious: Yes (Disabling)
  Sender: FDA-Public Use
  Company Number: None

PATIENT
  Age: 35 Year
  Sex: Female
  Weight: 58.5 kg

DRUGS (1)
  1. KLONOPIN [Suspect]
     Active Substance: CLONAZEPAM
     Indication: INSOMNIA
     Dosage: ?          OTHER STRENGTH:MG;QUANTITY:1 TABLET(S);?
     Route: 048
     Dates: start: 20160420, end: 20160901

REACTIONS (8)
  - Dizziness [None]
  - Abdominal pain upper [None]
  - Thinking abnormal [None]
  - General physical condition abnormal [None]
  - Cognitive disorder [None]
  - Bladder pain [None]
  - Speech disorder [None]
  - Amnesia [None]

NARRATIVE: CASE EVENT DATE: 20160901
